FAERS Safety Report 22749250 (Version 4)
Quarter: 2024Q1

REPORT INFORMATION
  Report Type: Spontaneous
  Country: US (occurrence: US)
  Receive Date: 20230725
  Receipt Date: 20240112
  Transmission Date: 20240410
  Serious: Yes (Other)
  Sender: FDA-Public Use
  Company Number: US-PFIZER INC-PV202300125580

PATIENT
  Age: 83 Year
  Sex: Female

DRUGS (2)
  1. IBRANCE [Suspect]
     Active Substance: PALBOCICLIB
     Dosage: 100 MG, CYCLIC (TAKE ON DAYS 1-21 OF A 28-DAY CYCLE. TAKE WITH OR WITHOUT FOOD.)
     Route: 048
  2. IBRANCE [Suspect]
     Active Substance: PALBOCICLIB
     Dosage: 100 MG, DAILY(TAKE ON DAYS 1-14 OF A 28-DAY CYCLE AND TAKE A 2WEEK BREAK. TAKE WITH OR WITHOUT FOOD)
     Route: 048

REACTIONS (5)
  - Neutropenia [Unknown]
  - Off label use [Unknown]
  - Product use issue [Unknown]
  - Fatigue [Unknown]
  - Dizziness [Unknown]
